FAERS Safety Report 6200459-3 (Version None)
Quarter: 2009Q2

REPORT INFORMATION
  Report Type: 
  Country: None (occurrence: None)
  Receive Date: 20090522
  Receipt Date: 20090518
  Transmission Date: 20091009
  Serious: Yes (Other)
  Sender: FDA-Public Use
  Company Number: DE-AMGEN-UK339570

PATIENT

DRUGS (1)
  1. ARANESP [Suspect]
     Indication: ANAEMIA
     Route: 058
     Dates: start: 20080101

REACTIONS (3)
  - APLASIA PURE RED CELL [None]
  - AZOTAEMIA [None]
  - THERAPEUTIC RESPONSE DECREASED [None]
